FAERS Safety Report 12457889 (Version 1)
Quarter: 2016Q2

REPORT INFORMATION
  Report Type: Spontaneous
  Country: US (occurrence: US)
  Receive Date: 20160612
  Receipt Date: 20160612
  Transmission Date: 20160815
  Serious: No
  Sender: FDA-Public Use
  Company Number: US-TEVA-665014USA

PATIENT
  Age: 47 Year
  Sex: Female

DRUGS (3)
  1. COPAXONE [Suspect]
     Active Substance: GLATIRAMER ACETATE
     Indication: MULTIPLE SCLEROSIS
     Route: 058
  2. MULTI VITAMIN [Concomitant]
     Active Substance: VITAMINS
  3. SPIRONOLACTONE. [Concomitant]
     Active Substance: SPIRONOLACTONE

REACTIONS (3)
  - Muscular weakness [Unknown]
  - Fatigue [Unknown]
  - Trismus [Unknown]

NARRATIVE: CASE EVENT DATE: 201605
